FAERS Safety Report 15857183 (Version 1)
Quarter: 2019Q1

REPORT INFORMATION
  Report Type: Spontaneous
  Country: AU (occurrence: AU)
  Receive Date: 20190123
  Receipt Date: 20190123
  Transmission Date: 20190417
  Serious: Yes (Hospitalization, Other)
  Sender: FDA-Public Use
  Company Number: AU-ACCORD-102681

PATIENT
  Age: 36 Year
  Sex: Female

DRUGS (10)
  1. OSELTAMIVIR/OSELTAMIVIR PHOSPHATE [Concomitant]
     Indication: RHINITIS
  2. BENZYLPENICILLIN [Suspect]
     Active Substance: PENICILLIN G
     Indication: PRODUCT USED FOR UNKNOWN INDICATION
  3. TAZOCIN [Suspect]
     Active Substance: PIPERACILLIN SODIUM\TAZOBACTAM SODIUM
     Indication: PRODUCT USED FOR UNKNOWN INDICATION
  4. CEFTRIAXONE. [Suspect]
     Active Substance: CEFTRIAXONE
     Indication: BILE DUCT STONE
  5. ESCITALOPRAM [Suspect]
     Active Substance: ESCITALOPRAM OXALATE
     Indication: CROHN^S DISEASE
  6. CIPROFLOXACIN. [Suspect]
     Active Substance: CIPROFLOXACIN
     Indication: PRODUCT USED FOR UNKNOWN INDICATION
  7. MESALAZINE [Concomitant]
     Active Substance: MESALAMINE
     Indication: CROHN^S DISEASE
  8. CEFALEXIN [Suspect]
     Active Substance: CEPHALEXIN
     Indication: RHINITIS
  9. CLINDAMYCIN. [Suspect]
     Active Substance: CLINDAMYCIN
     Indication: PRODUCT USED FOR UNKNOWN INDICATION
  10. METRONIDAZOLE. [Suspect]
     Active Substance: METRONIDAZOLE
     Indication: CHOLECYSTITIS

REACTIONS (7)
  - Hypersensitivity [Recovering/Resolving]
  - Off label use [Unknown]
  - Swelling face [Unknown]
  - Rash [Unknown]
  - Idiosyncratic drug reaction [Recovering/Resolving]
  - Drug-induced liver injury [Recovering/Resolving]
  - Hepatitis infectious mononucleosis [Recovering/Resolving]
